FAERS Safety Report 8094423-X (Version None)
Quarter: 2012Q1

REPORT INFORMATION
  Report Type: 
  Country: None (occurrence: None)
  Receive Date: 20120130
  Receipt Date: 20120123
  Transmission Date: 20120608
  Serious: Yes (Other)
  Sender: FDA-Public Use
  Company Number: BR-SANOFI-AVENTIS-2012SA004994

PATIENT
  Age: 32 Year
  Sex: Male
  Weight: 60 kg

DRUGS (5)
  1. SOLOSTAR [Suspect]
     Indication: DEVICE THERAPY
     Dates: start: 20101118
  2. APIDRA SOLOSTAR [Suspect]
     Dosage: DOSE: 6-8-4
     Route: 058
     Dates: start: 20101118
  3. HYDROCHLOROTHIAZIDE [Concomitant]
     Route: 048
     Dates: start: 20110101
  4. CAPTOPRIL [Concomitant]
     Route: 048
     Dates: start: 20110101
  5. LANTUS [Concomitant]
     Route: 058
     Dates: start: 20101118

REACTIONS (3)
  - COELIAC DISEASE [None]
  - DYSENTERY [None]
  - ABDOMINAL PAIN UPPER [None]
